FAERS Safety Report 14986842 (Version 1)
Quarter: 2020Q3

REPORT INFORMATION
  Report Type: Spontaneous
  Country: ZA (occurrence: ZA)
  Receive Date: 20180608
  Receipt Date: 20180608
  Transmission Date: 20201105
  Serious: Yes (Other)
  Sender: FDA-Public Use
  Company Number: ZA-ALKEM LABORATORIES LIMITED-ZA-ALKEM-2018-03724

PATIENT
  Age: 29 Month
  Sex: Female

DRUGS (9)
  1. PYRAZINAMIDE. [Suspect]
     Active Substance: PYRAZINAMIDE
     Indication: TUBERCULOSIS
     Dosage: UNK
     Route: 065
  2. LINEZOLID. [Suspect]
     Active Substance: LINEZOLID
     Indication: TUBERCULOSIS
     Dosage: 10 MG/KG, TID
     Route: 065
  3. RIFAMPICIN [Suspect]
     Active Substance: RIFAMPIN
     Indication: TUBERCULOSIS
     Dosage: UNK
     Route: 065
  4. LINEZOLID. [Suspect]
     Active Substance: LINEZOLID
     Dosage: 7 MG/KG, TID
     Route: 065
  5. ETHAMBUTOL [Suspect]
     Active Substance: ETHAMBUTOL HYDROCHLORIDE
     Indication: TUBERCULOSIS
     Dosage: UNK
     Route: 065
  6. CAPREOMYCIN [Suspect]
     Active Substance: CAPREOMYCIN
     Indication: TUBERCULOSIS
     Dosage: UNK
     Route: 065
  7. ISONIAZID. [Suspect]
     Active Substance: ISONIAZID
     Indication: TUBERCULOSIS
     Dosage: UNK
     Route: 065
  8. AMIKACIN. [Suspect]
     Active Substance: AMIKACIN
     Indication: TUBERCULOSIS
     Dosage: UNK
     Route: 065
  9. LEVOFLOXACIN. [Suspect]
     Active Substance: LEVOFLOXACIN
     Indication: TUBERCULOSIS
     Dosage: UNK
     Route: 065

REACTIONS (2)
  - Drug resistance [Unknown]
  - Neutropenia [Not Recovered/Not Resolved]
